FAERS Safety Report 8927065 (Version 2)
Quarter: 2013Q1

REPORT INFORMATION
  Report Type: Spontaneous
  Country: US (occurrence: US)
  Receive Date: 20121127
  Receipt Date: 20130207
  Transmission Date: 20140127
  Serious: No
  Sender: FDA-Public Use
  Company Number: US-009507513-1211USA004320

PATIENT
  Sex: Male
  Weight: 83.9 kg

DRUGS (4)
  1. MIRALAX [Suspect]
     Indication: CONSTIPATION
     Dosage: 17 G, BID
     Route: 048
     Dates: start: 201209, end: 201210
  2. MIRALAX [Suspect]
     Indication: MEDICAL OBSERVATION
  3. NASONEX [Concomitant]
     Indication: HYPERSENSITIVITY
     Dosage: UNK, UNKNOWN
  4. PATANASE [Concomitant]
     Indication: HYPERSENSITIVITY
     Dosage: UNK, UNKNOWN

REACTIONS (3)
  - Asthma [Recovered/Resolved]
  - Nasal congestion [Recovered/Resolved]
  - Overdose [Unknown]
